FAERS Safety Report 18419951 (Version 1)
Quarter: 2020Q4

REPORT INFORMATION
  Report Type: Spontaneous
  Country: TR (occurrence: TR)
  Receive Date: 20201023
  Receipt Date: 20201023
  Transmission Date: 20210114
  Serious: Yes (Other)
  Sender: FDA-Public Use
  Company Number: TR-GLAXOSMITHKLINE-TR2020TRK209084

PATIENT
  Age: 79 Year
  Sex: Female

DRUGS (7)
  1. ENOX [Concomitant]
     Indication: THROMBOSIS
     Dosage: UNK
  2. REQUIP XL [Suspect]
     Active Substance: ROPINIROLE HYDROCHLORIDE
     Dosage: 4 MG
     Route: 048
  3. DETRUSITOL [Concomitant]
     Active Substance: TOLTERODINE TARTRATE
     Indication: URINARY INCONTINENCE
     Dosage: UNK
  4. MADOPAR [Suspect]
     Active Substance: BENSERAZIDE HYDROCHLORIDE\LEVODOPA
     Indication: PARKINSON^S DISEASE
     Dosage: UNK
  5. REQUIP XL [Suspect]
     Active Substance: ROPINIROLE HYDROCHLORIDE
     Indication: PARKINSON^S DISEASE
     Dosage: 8 UNK
     Route: 048
     Dates: end: 20201019
  6. PK-MERZ [Suspect]
     Active Substance: AMANTADINE
     Indication: PARKINSON^S DISEASE
     Dosage: UNK
  7. VITAMIN D3 [Concomitant]
     Active Substance: CHOLECALCIFEROL
     Indication: BONE CANCER
     Dosage: UNK

REACTIONS (4)
  - Hyperhidrosis [Not Recovered/Not Resolved]
  - Product availability issue [Unknown]
  - Nightmare [Not Recovered/Not Resolved]
  - Hallucination [Not Recovered/Not Resolved]
